FAERS Safety Report 7064530-9 (Version None)
Quarter: 2010Q4

REPORT INFORMATION
  Report Type: 
  Country: None (occurrence: None)
  Receive Date: 20101022
  Receipt Date: 20101022
  Transmission Date: 20110411
  Serious: Yes (Other)
  Sender: FDA-Public Use
  Company Number: None

PATIENT
  Sex: Female
  Weight: 48.9885 kg

DRUGS (5)
  1. PRAMIPEXOLE DIHYDROCHLORIDE [Suspect]
     Indication: RESTLESS LEGS SYNDROME
     Dosage: .25 AND .125 MG 2 HRS B/4 BED ORAL TABS TRIED SEVERAL TIMES IN 2010 SAME LO EFFECT
     Route: 048
     Dates: start: 20100118
  2. PRAMIPEXOLE DIHYDROCHLORIDE [Suspect]
     Indication: RESTLESS LEGS SYNDROME
     Dosage: .25 AND .125 MG 2 HRS B/4 BED ORAL TABS TRIED SEVERAL TIMES IN 2010 SAME LO EFFECT
     Route: 048
     Dates: start: 20100629
  3. TRAMADOL HCL [Suspect]
     Indication: ARTHRALGIA
     Dosage: 2 TO 3X DAY ORAL TABS
     Route: 048
  4. TRAMADOL HCL [Suspect]
     Indication: NEUROPATHY PERIPHERAL
     Dosage: 2 TO 3X DAY ORAL TABS
     Route: 048
  5. ULTRAM [Concomitant]

REACTIONS (5)
  - BLOOD GLUCOSE INCREASED [None]
  - DRUG EFFECT DECREASED [None]
  - PRODUCT PACKAGING ISSUE [None]
  - PRODUCT SUBSTITUTION ISSUE [None]
  - SLEEP DISORDER [None]
